FAERS Safety Report 7523647-2 (Version None)
Quarter: 2011Q2

REPORT INFORMATION
  Report Type: 
  Country: None (occurrence: None)
  Receive Date: 20110603
  Receipt Date: 20110601
  Transmission Date: 20111010
  Serious: Yes (Other)
  Sender: FDA-Public Use
  Company Number: US-ALLERGAN-1105225US

PATIENT
  Age: 39 Year
  Sex: Female
  Weight: 51.247 kg

DRUGS (3)
  1. INNOPRAN [Concomitant]
     Indication: MIGRAINE
     Dosage: 1 DF, QD
     Dates: start: 20110302
  2. NEXIUM [Concomitant]
     Indication: GASTROOESOPHAGEAL REFLUX DISEASE
     Dosage: 1 DF, QD
     Dates: start: 20080601
  3. BOTOX [Suspect]
     Indication: MIGRAINE
     Dosage: 200 UNITS, SINGLE
     Route: 030
     Dates: start: 20110304, end: 20110304

REACTIONS (8)
  - PHARYNGEAL INFLAMMATION [None]
  - JOINT RANGE OF MOTION DECREASED [None]
  - QUALITY OF LIFE DECREASED [None]
  - DYSPNOEA [None]
  - FATIGUE [None]
  - DYSPHAGIA [None]
  - MUSCULOSKELETAL STIFFNESS [None]
  - CHOKING SENSATION [None]
